FAERS Safety Report 18026218 (Version 1)
Quarter: 2020Q3

REPORT INFORMATION
  Report Type: Spontaneous
  Country: US (occurrence: US)
  Receive Date: 20200715
  Receipt Date: 20200715
  Transmission Date: 20201103
  Serious: No
  Sender: FDA-Public Use
  Company Number: US-INSMED, INC.-US-INS-20-00740

PATIENT
  Sex: Male

DRUGS (3)
  1. CAYSTON [Concomitant]
     Active Substance: AZTREONAM
     Indication: CYSTIC FIBROSIS
     Dosage: EVERY OTHER MONTH
  2. ARIKAYCE [Suspect]
     Active Substance: AMIKACIN
     Indication: CYSTIC FIBROSIS
     Route: 055
     Dates: start: 20200331
  3. LAMIRA NEBULIZER SYSTEM [Suspect]
     Active Substance: DEVICE

REACTIONS (2)
  - Off label use [Unknown]
  - Product administered to patient of inappropriate age [Unknown]
